FAERS Safety Report 9937613 (Version 1)
Quarter: 2014Q1

REPORT INFORMATION
  Report Type: Spontaneous
  Country: US (occurrence: US)
  Receive Date: 20140303
  Receipt Date: 20140303
  Transmission Date: 20141002
  Serious: No
  Sender: FDA-Public Use
  Company Number: US-009507513-1402USA012861

PATIENT
  Age: 50 Year
  Sex: Male

DRUGS (2)
  1. DEXAMETHASONE [Suspect]
     Indication: THROMBOCYTOPENIA
     Dosage: 40 MG, UNK
     Route: 042
  2. GLOBULIN, IMMUNE [Suspect]
     Indication: THROMBOCYTOPENIA
     Dosage: 1MG/KG, DAILY
     Route: 042

REACTIONS (1)
  - Drug ineffective [Unknown]
